FAERS Safety Report 4471839-1 (Version None)
Quarter: 2004Q4

REPORT INFORMATION
  Report Type: 
  Country: None (occurrence: None)
  Receive Date: 20041006
  Receipt Date: 20040922
  Transmission Date: 20050328
  Serious: Yes (Hospitalization, Other)
  Sender: FDA-Public Use
  Company Number: 2004069968

PATIENT
  Age: 65 Year
  Sex: Male
  Weight: 68 kg

DRUGS (8)
  1. TAHOR (ATORVASTATIN) [Suspect]
     Indication: ILL-DEFINED DISORDER
     Dosage: 10 MG (10 MG, 1 IN 1 D), ORAL
     Route: 048
  2. AMLODIPINE [Suspect]
     Indication: ILL-DEFINED DISORDER
     Dosage: 5 MG (5 MG, 1 IN 1 D), ORAL
     Route: 048
  3. FUROSEMIDE [Suspect]
     Indication: ILL-DEFINED DISORDER
     Dosage: ORAL
     Route: 048
  4. ACETYLSALICYLIC ACID SRT [Suspect]
     Indication: ILL-DEFINED DISORDER
     Dosage: ORAL
     Route: 048
  5. ALLOPURINOL [Suspect]
     Indication: ILL-DEFINED DISORDER
     Dosage: 200 MG (200 MG, 1 IN 1 D), ORAL
     Route: 048
  6. REPAGLINIDE (REPAGLINIDE) [Suspect]
     Indication: ILL-DEFINED DISORDER
     Dosage: (3 IN 1 D), ORAL
     Route: 048
  7. AMIODARONE HCL [Concomitant]
  8. GLYCERIL TRINITRATE (GLYCERIL TRINITRATE) [Concomitant]

REACTIONS (18)
  - BLOOD CREATININE INCREASED [None]
  - BLOOD THYROID STIMULATING HORMONE INCREASED [None]
  - BLOOD UREA INCREASED [None]
  - CARDIAC PACEMAKER INSERTION [None]
  - COOMBS DIRECT TEST POSITIVE [None]
  - EOSINOPHIL COUNT INCREASED [None]
  - HAEMOLYTIC ANAEMIA [None]
  - HYPERCOAGULATION [None]
  - HYPOSIDERAEMIA [None]
  - IMMUNE SYSTEM DISORDER [None]
  - INFLAMMATION [None]
  - KAOLIN CEPHALIN CLOTTING TIME PROLONGED [None]
  - NEUTROPHIL COUNT INCREASED [None]
  - PNEUMOTHORAX [None]
  - POST PROCEDURAL COMPLICATION [None]
  - RED BLOOD CELL SEDIMENTATION RATE INCREASED [None]
  - SERUM FERRITIN INCREASED [None]
  - TRI-IODOTHYRONINE DECREASED [None]
